FAERS Safety Report 4764185-X (Version None)
Quarter: 2005Q3

REPORT INFORMATION
  Report Type: 
  Country: None (occurrence: None)
  Receive Date: 20050902
  Receipt Date: 20050322
  Transmission Date: 20060218
  Serious: Yes (Other)
  Sender: FDA-Public Use
  Company Number: 004432

PATIENT
  Age: 49 Year
  Sex: Female
  Weight: 49 kg

DRUGS (1)
  1. NORDETTE-28 [Suspect]
     Indication: MENORRHAGIA
     Dosage: 1.00 TABLET, QD, ORAL
     Route: 048
     Dates: start: 20050315, end: 20050317

REACTIONS (2)
  - CONDITION AGGRAVATED [None]
  - MENORRHAGIA [None]
